FAERS Safety Report 23716005 (Version 1)
Quarter: 2024Q2

REPORT INFORMATION
  Report Type: Spontaneous
  Country: US (occurrence: None)
  Receive Date: 20240408
  Receipt Date: 20240408
  Transmission Date: 20240717
  Serious: No
  Sender: FDA-Public Use
  Company Number: 2024A067834

PATIENT
  Sex: Male

DRUGS (2)
  1. CRESTOR [Suspect]
     Active Substance: ROSUVASTATIN CALCIUM
     Route: 048
  2. EZETIMIBE [Suspect]
     Active Substance: EZETIMIBE
     Dates: start: 20240224

REACTIONS (7)
  - Low density lipoprotein increased [Unknown]
  - Bone pain [Unknown]
  - Arthralgia [Unknown]
  - Constipation [Unknown]
  - Abdominal distension [Unknown]
  - Muscle spasms [Unknown]
  - Lethargy [Unknown]
